FAERS Safety Report 8586384-1 (Version None)
Quarter: 2012Q3

REPORT INFORMATION
  Report Type: 
  Country: None (occurrence: None)
  Receive Date: 20120810
  Receipt Date: 20120806
  Transmission Date: 20120928
  Serious: Yes (Other)
  Sender: FDA-Public Use
  Company Number: US-PFIZER INC-2012192028

PATIENT
  Age: 56 Year
  Sex: Female
  Weight: 81.633 kg

DRUGS (7)
  1. LYRICA [Suspect]
     Dosage: 50 MG, 3X/DAY
  2. ZESTRIL [Concomitant]
     Indication: HYPERTENSION
     Dosage: 20 MG, DAILY
  3. LYRICA [Suspect]
     Indication: FIBROMYALGIA
     Dosage: 25 MG, UNK
     Dates: start: 20070101
  4. METFORMIN [Concomitant]
     Indication: DIABETES MELLITUS
     Dosage: 500 MG, 3X/DAY
  5. LYRICA [Suspect]
     Dosage: 75 MG, 3X/DAY
     Dates: start: 20120101
  6. SEROQUEL [Concomitant]
     Indication: BIPOLAR I DISORDER
     Dosage: 300 MG, DAILY AT NIGHT
  7. HYDROCHLOROTHIAZIDE [Concomitant]
     Indication: HYPERTENSION
     Dosage: 0.5 MG, DAILY

REACTIONS (2)
  - VISUAL IMPAIRMENT [None]
  - VISION BLURRED [None]
